FAERS Safety Report 17265484 (Version 1)
Quarter: 2020Q1

REPORT INFORMATION
  Report Type: Spontaneous
  Country: FR (occurrence: FR)
  Receive Date: 20200114
  Receipt Date: 20200114
  Transmission Date: 20200409
  Serious: Yes (Life-Threatening)
  Sender: FDA-Public Use
  Company Number: FR-TEVA-2020-FR-1167044

PATIENT
  Age: 46 Year
  Sex: Female

DRUGS (7)
  1. DESOGESTREL [Suspect]
     Active Substance: DESOGESTREL
     Indication: SUICIDE ATTEMPT
     Dosage: DESOGESTREL 75 (4 DOSAGE FORMS IN TOTAL)
     Route: 048
     Dates: start: 20191024, end: 20191024
  2. DOLIPRANE [Suspect]
     Active Substance: ACETAMINOPHEN
     Indication: SUICIDE ATTEMPT
     Dosage: 46 DOSAGE FORMS IN TOTAL
     Route: 048
     Dates: start: 20191024, end: 20191024
  3. VALIUM [Suspect]
     Active Substance: DIAZEPAM
     Indication: SUICIDE ATTEMPT
     Dosage: 19 DOSAGE FORMS IN TOTAL
     Route: 048
     Dates: start: 20191024, end: 20191024
  4. VENLAFAXINE [Suspect]
     Active Substance: VENLAFAXINE HYDROCHLORIDE
     Indication: SUICIDE ATTEMPT
     Dosage: 20 DOSAGE FORMS IN TOTAL
     Route: 048
     Dates: start: 20191024, end: 20191024
  5. ATARAX [Suspect]
     Active Substance: HYDROXYZINE HYDROCHLORIDE
     Indication: SUICIDE ATTEMPT
     Dosage: 20 DOSAGE FORMS IN TOTAL
     Route: 048
     Dates: start: 20191024, end: 20191024
  6. THERALENE [Suspect]
     Active Substance: TRIMEPRAZINE
     Indication: SUICIDE ATTEMPT
     Dosage: 30ML IN TOTAL
     Route: 048
     Dates: start: 20191024, end: 20191024
  7. VALIUM [Suspect]
     Active Substance: DIAZEPAM
     Indication: SUICIDE ATTEMPT
     Dosage: 27 DOSAGE FORMS IN TOTAL
     Route: 048
     Dates: start: 20191024, end: 20191024

REACTIONS (1)
  - Suicide attempt [Recovered/Resolved]

NARRATIVE: CASE EVENT DATE: 20191024
